FAERS Safety Report 6045012-X (Version None)
Quarter: 2009Q1

REPORT INFORMATION
  Report Type: 
  Country: None (occurrence: None)
  Receive Date: 20090116
  Receipt Date: 20090116
  Transmission Date: 20090719
  Serious: Yes (Other)
  Sender: FDA-Public Use
  Company Number: None

PATIENT
  Age: 76 Year
  Sex: Female
  Weight: 53.5244 kg

DRUGS (7)
  1. CITALOPRAM HYDROBROMIDE [Suspect]
     Indication: DEPRESSION
     Dosage: 20 MG DAILY ORAL
     Route: 048
     Dates: start: 20081022, end: 20081226
  2. COUMADIN [Concomitant]
  3. DIGOXIN [Concomitant]
  4. ATENOLOL [Concomitant]
  5. ALPRAZOLAM [Concomitant]
  6. ZOLPIDEM [Concomitant]
  7. NEXIUM [Concomitant]

REACTIONS (11)
  - DRY MOUTH [None]
  - DYSPHAGIA [None]
  - GLOSSITIS [None]
  - GLOSSODYNIA [None]
  - MUSCLE TWITCHING [None]
  - ORAL DISORDER [None]
  - ORAL PRURITUS [None]
  - PAIN [None]
  - PRURITUS [None]
  - SWOLLEN TONGUE [None]
  - URTICARIA [None]
